FAERS Safety Report 11896536 (Version 2)
Quarter: 2016Q1

REPORT INFORMATION
  Report Type: Report from Study
  Country: CA (occurrence: CA)
  Receive Date: 20160107
  Receipt Date: 20160112
  Transmission Date: 20160526
  Serious: Yes (Hospitalization)
  Sender: FDA-Public Use
  Company Number: CA-ABBVIE-15K-028-1509614-00

PATIENT
  Sex: Female

DRUGS (3)
  1. HUMIRA [Suspect]
     Active Substance: ADALIMUMAB
     Route: 058
     Dates: start: 20151204, end: 20151204
  2. HUMIRA [Suspect]
     Active Substance: ADALIMUMAB
     Indication: PSORIATIC ARTHROPATHY
     Route: 058
     Dates: start: 2011, end: 201511
  3. ASACOL [Concomitant]
     Active Substance: MESALAMINE
     Indication: PRODUCT USED FOR UNKNOWN INDICATION
     Route: 048
     Dates: start: 200907

REACTIONS (8)
  - Proctalgia [Unknown]
  - Cellulitis [Unknown]
  - Folliculitis [Unknown]
  - Malaise [Not Recovered/Not Resolved]
  - Lichen sclerosus [Unknown]
  - Staphylococcal infection [Not Recovered/Not Resolved]
  - Diarrhoea [Unknown]
  - Vaginal abscess [Unknown]

NARRATIVE: CASE EVENT DATE: 2015
